FAERS Safety Report 8458811-1 (Version None)
Quarter: 2012Q2

REPORT INFORMATION
  Report Type: 
  Country: None (occurrence: None)
  Receive Date: 20120615
  Receipt Date: 20120601
  Transmission Date: 20120825
  Serious: Yes (Hospitalization)
  Sender: FDA-Public Use
  Company Number: AXC-2012-000258

PATIENT
  Age: 68 Year
  Sex: Female

DRUGS (6)
  1. URSODEOXYCHOLIC ACID (URSODEOXYCHOLIC ACID) UNKNOWN [Suspect]
     Indication: PRODUCT USED FOR UNKNOWN INDICATION
     Dosage: 600 MG, QD, ORAL
     Route: 048
  2. MUCOSTA (REBAMIPIDE) UNKNOWN [Concomitant]
  3. SIMPONI [Suspect]
     Indication: PRODUCT USED FOR UNKNOWN INDICATION
     Dosage: MG/MONTH, SUBCUTANEOUS, 100 MG/MONTH, SUBCUTANEOUS
     Route: 058
     Dates: start: 20120406
  4. SIMPONI [Suspect]
     Indication: PRODUCT USED FOR UNKNOWN INDICATION
     Dosage: MG/MONTH, SUBCUTANEOUS, 100 MG/MONTH, SUBCUTANEOUS
     Route: 058
     Dates: start: 20111216
  5. EVISTA [Concomitant]
  6. AMLODIN  (AMLODIPINE BESILATE) UNKNOWN [Concomitant]

REACTIONS (1)
  - ERYTHEMA MULTIFORME [None]
